FAERS Safety Report 4644458-1 (Version None)
Quarter: 2005Q2

REPORT INFORMATION
  Report Type: 
  Country: None (occurrence: None)
  Receive Date: 20050331
  Receipt Date: 20041227
  Transmission Date: 20051028
  Serious: No
  Sender: FDA-Public Use
  Company Number: 04P-163-0284547-00

PATIENT
  Age: 75 Year
  Sex: Female
  Weight: 42.6381 kg

DRUGS (12)
  1. HUMIRA [Suspect]
     Indication: RHEUMATOID ARTHRITIS
     Dosage: 40 MG, 1 IN 2 WK, SUBCUTANEOUS
     Route: 058
     Dates: start: 20041102, end: 20041215
  2. PREDNISONE [Concomitant]
  3. THEO-DUR [Concomitant]
  4. ATORVASTATIN CALCIUM [Concomitant]
  5. ROXYCODONE [Concomitant]
  6. OXYCODONE HCL [Concomitant]
  7. METHOTREXATE SODIUM [Concomitant]
  8. SINGULAIR [Concomitant]
  9. ADVAIR DISKUS 100/50 [Concomitant]
  10. ALENDRONATE SODIUM [Concomitant]
  11. HYDROXYZINE HYDROCHLORIDE [Concomitant]
  12. ALBUTEROL SULFATE HFA [Concomitant]

REACTIONS (5)
  - APHTHOUS STOMATITIS [None]
  - COUGH [None]
  - DYSPNOEA [None]
  - FATIGUE [None]
  - URINARY TRACT INFECTION [None]
